FAERS Safety Report 20988411 (Version 1)
Quarter: 2022Q2

REPORT INFORMATION
  Report Type: Spontaneous
  Country: US (occurrence: None)
  Receive Date: 20220620
  Receipt Date: 20220620
  Transmission Date: 20220721
  Serious: No
  Sender: FDA-Public Use
  Company Number: None

PATIENT
  Age: 37 Year
  Sex: Female

DRUGS (1)
  1. WINLEVI [Suspect]
     Active Substance: CLASCOTERONE
     Indication: Acne
     Dates: start: 20220603, end: 20220620

REACTIONS (2)
  - Skin disorder [None]
  - Wrong technique in product usage process [None]

NARRATIVE: CASE EVENT DATE: 20220620
